FAERS Safety Report 7534352-0 (Version None)
Quarter: 2011Q2

REPORT INFORMATION
  Report Type: 
  Country: None (occurrence: None)
  Receive Date: 20110608
  Receipt Date: 20110517
  Transmission Date: 20111010
  Serious: No
  Sender: FDA-Public Use
  Company Number: US-AMGEN-USASP2011025507

PATIENT
  Sex: Female

DRUGS (2)
  1. CALCIUM CARBONATE [Concomitant]
  2. PROLIA [Suspect]
     Indication: OSTEOPOROSIS POSTMENOPAUSAL
     Dosage: 60 MG, Q6MO
     Dates: start: 20110505

REACTIONS (2)
  - MIDDLE INSOMNIA [None]
  - MUSCLE SPASMS [None]
